FAERS Safety Report 22109209 (Version 1)
Quarter: 2023Q1

REPORT INFORMATION
  Report Type: Report from Study
  Country: CO (occurrence: CO)
  Receive Date: 20230317
  Receipt Date: 20230317
  Transmission Date: 20230418
  Serious: Yes (Hospitalization)
  Sender: FDA-Public Use
  Company Number: CO-ABBVIE-4342707

PATIENT
  Age: 70 Year
  Sex: Female
  Weight: 61 kg

DRUGS (1)
  1. ZEMPLAR [Suspect]
     Active Substance: PARICALCITOL
     Indication: Hyperparathyroidism secondary
     Dosage: 1 MICROGRAM
     Route: 048
     Dates: start: 20221229

REACTIONS (7)
  - Blood pressure abnormal [Recovered/Resolved]
  - Speech disorder [Recovered/Resolved]
  - Insomnia [Recovering/Resolving]
  - Blood pressure abnormal [Recovered/Resolved]
  - Mobility decreased [Recovered/Resolved]
  - Blood pressure abnormal [Recovered/Resolved]
  - Dizziness [Recovered/Resolved]

NARRATIVE: CASE EVENT DATE: 20230201
